FAERS Safety Report 19392439 (Version 2)
Quarter: 2021Q3

REPORT INFORMATION
  Report Type: Report from Study
  Country: BR (occurrence: BR)
  Receive Date: 20210608
  Receipt Date: 20210811
  Transmission Date: 20211014
  Serious: Yes (Other)
  Sender: FDA-Public Use
  Company Number: BR-BIOGEN-2021BI01017234

PATIENT
  Sex: Female

DRUGS (3)
  1. CLOBABAM [Concomitant]
     Indication: ANTIDEPRESSANT THERAPY
     Route: 065
  2. ASTRAZENECA COVID?19 VACCINE [Suspect]
     Active Substance: AZD-1222
     Indication: COVID-19 PROPHYLAXIS
     Route: 065
  3. TYSABRI [Suspect]
     Active Substance: NATALIZUMAB
     Indication: MULTIPLE SCLEROSIS
     Route: 048
     Dates: start: 20130205

REACTIONS (2)
  - Seizure [Recovered/Resolved]
  - Vaccination complication [Recovered/Resolved]
